FAERS Safety Report 8591415-9 (Version None)
Quarter: 2012Q3

REPORT INFORMATION
  Report Type: 
  Country: None (occurrence: None)
  Receive Date: 20120803
  Receipt Date: 20120803
  Transmission Date: 20120928
  Serious: Yes (Disabling)
  Sender: FDA-Public Use
  Company Number: None

PATIENT
  Sex: Female
  Weight: 70.3075 kg

DRUGS (1)
  1. DETROL LA [Suspect]
     Indication: POLLAKIURIA
     Dosage: 1 CAPSULE DAILY PO WAITING FOR DR. REPORTS
     Route: 048

REACTIONS (16)
  - HAEMORRHAGE [None]
  - ANGLE CLOSURE GLAUCOMA [None]
  - FLOPPY IRIS SYNDROME [None]
  - VISION BLURRED [None]
  - ODYNOPHAGIA [None]
  - HEADACHE [None]
  - EPISTAXIS [None]
  - ABNORMAL SENSATION IN EYE [None]
  - EYE PAIN [None]
  - CATARACT OPERATION COMPLICATION [None]
  - OROPHARYNGEAL PAIN [None]
  - PHOTOPSIA [None]
  - DRY EYE [None]
  - SCLERAL HYPERAEMIA [None]
  - CATARACT [None]
  - DIPLOPIA [None]
